FAERS Safety Report 20492166 (Version 3)
Quarter: 2022Q1

REPORT INFORMATION
  Report Type: Report from Study
  Country: BR (occurrence: BR)
  Receive Date: 20220218
  Receipt Date: 20220322
  Transmission Date: 20220424
  Serious: Yes (Death, Hospitalization)
  Sender: FDA-Public Use
  Company Number: BR-HORIZON THERAPEUTICS-HZN-2022-001338

PATIENT

DRUGS (6)
  1. PROCYSBI [Suspect]
     Active Substance: CYSTEAMINE BITARTRATE
     Indication: Cystinosis
     Dosage: 12 DOSAGE FORM, BID (TOTAL OF 1800MG/DAY)
     Route: 065
     Dates: start: 20200217, end: 202112
  2. COVID-19 VACCINE [Concomitant]
     Indication: Prophylaxis
     Dosage: 2 DOSES OF CORONAVAC AND 01 DOSE OF PFIZER
  3. SYNTHROID [Concomitant]
     Active Substance: LEVOTHYROXINE SODIUM
     Dosage: 175 MG, QD
  4. METICORTEN [Concomitant]
     Active Substance: PREDNISONE
     Dosage: 5 MG, QD
  5. CYCLOSPORINE [Concomitant]
     Active Substance: CYCLOSPORINE
     Dosage: 100 MG, QD
  6. MYCOPHENOLATE SODIUM [Concomitant]
     Active Substance: MYCOPHENOLATE SODIUM
     Dosage: 360 MG, QD

REACTIONS (6)
  - COVID-19 [Fatal]
  - Sepsis [Fatal]
  - Multiple organ dysfunction syndrome [Fatal]
  - Infection [Fatal]
  - Renal failure [Fatal]
  - Product supply issue [Unknown]

NARRATIVE: CASE EVENT DATE: 20220123
